FAERS Safety Report 4444851-6 (Version None)
Quarter: 2004Q3

REPORT INFORMATION
  Report Type: 
  Country: None (occurrence: None)
  Receive Date: 20040903
  Receipt Date: 20040820
  Transmission Date: 20050211
  Serious: Yes (Death, Hospitalization, Other)
  Sender: FDA-Public Use
  Company Number: 2004229694FR

PATIENT
  Age: 78 Year
  Sex: Male

DRUGS (6)
  1. CAMPTOSAR [Suspect]
     Indication: COLON CANCER METASTATIC
     Dosage: 350 MG, CYCLIC; IV
     Route: 042
     Dates: start: 20040621, end: 20040622
  2. FLUOROURACIL [Suspect]
     Indication: COLON CANCER METASTATIC
     Dosage: 1600 MG, CYCLIC; IV
     Route: 042
     Dates: start: 20040621, end: 20040623
  3. CALCIUM FOLINATE (CALCIUM FOLINATE) SOLUTION, STERILE [Suspect]
     Indication: COLON CANCER METASTATIC
     Dosage: 375 MG, CYCLIC; UNK
     Route: 065
  4. SOLU-MEDROL [Concomitant]
  5. ONDANSETRON HYDROCHLORIDE [Concomitant]
  6. ATROPINE [Concomitant]

REACTIONS (6)
  - FEBRILE NEUTROPENIA [None]
  - GENERAL PHYSICAL HEALTH DETERIORATION [None]
  - HYPERKALAEMIA [None]
  - MEDICATION ERROR [None]
  - RENAL FAILURE ACUTE [None]
  - SUDDEN DEATH [None]
